FAERS Safety Report 6718177-1 (Version None)
Quarter: 2010Q2

REPORT INFORMATION
  Report Type: 
  Country: None (occurrence: None)
  Receive Date: 20100510
  Receipt Date: 20100428
  Transmission Date: 20101027
  Serious: Yes (Other)
  Sender: FDA-Public Use
  Company Number: US-PFIZER INC-2010053876

PATIENT
  Sex: Male
  Weight: 95.2 kg

DRUGS (6)
  1. SUTENT [Suspect]
     Indication: RENAL CELL CARCINOMA
     Dosage: 50 MG, 1X/DAY, FOR 28 DAYS, EVERY 42 DAYS
     Route: 048
     Dates: start: 20100413
  2. NORVASC [Concomitant]
     Indication: HYPERTENSION
     Dosage: 10 MG, 1X/DAY
  3. HYZAAR [Concomitant]
     Indication: HYPERTENSION
     Dosage: 100/25 MG DAILY
  4. ALLOPURINOL [Concomitant]
     Indication: GOUT
     Dosage: 100 MG, UNK
  5. ACETYLSALICYLIC ACID [Concomitant]
     Dosage: UNK
  6. PANTOPRAZOLE [Concomitant]
     Indication: GASTROOESOPHAGEAL REFLUX DISEASE
     Dosage: 40 MG, UNK

REACTIONS (5)
  - CHROMATURIA [None]
  - HAEMORRHAGE [None]
  - HAEMORRHOIDAL HAEMORRHAGE [None]
  - HALLUCINATION, TACTILE [None]
  - YELLOW SKIN [None]
